FAERS Safety Report 23059181 (Version 2)
Quarter: 2023Q4

REPORT INFORMATION
  Report Type: Spontaneous
  Country: US (occurrence: US)
  Receive Date: 20231012
  Receipt Date: 20231129
  Transmission Date: 20240110
  Serious: No
  Sender: FDA-Public Use
  Company Number: US-PFIZER INC-PV202300167704

PATIENT
  Age: 26 Year
  Sex: Male

DRUGS (3)
  1. CIBINQO [Suspect]
     Active Substance: ABROCITINIB
     Dosage: TAKING THIS ONCE A DAY
  2. CIBINQO [Suspect]
     Active Substance: ABROCITINIB
     Dosage: TAKING HALF TWICE DAILY
  3. CIBINQO [Suspect]
     Active Substance: ABROCITINIB
     Dosage: 150 MG

REACTIONS (6)
  - Insomnia [Recovered/Resolved]
  - Off label use [Unknown]
  - Wrong technique in product usage process [Unknown]
  - Condition aggravated [Unknown]
  - Off label use [Unknown]
  - Rash [Unknown]

NARRATIVE: CASE EVENT DATE: 20231001
